FAERS Safety Report 5486930-0 (Version None)
Quarter: 2007Q4

REPORT INFORMATION
  Report Type: 
  Country: None (occurrence: None)
  Receive Date: 20071012
  Receipt Date: 20071012
  Transmission Date: 20080405
  Serious: Yes (Hospitalization)
  Sender: FDA-Public Use
  Company Number: None

PATIENT
  Age: 76 Year
  Sex: Male

DRUGS (3)
  1. ASPIRIN [Suspect]
     Indication: CORONARY ARTERY DISEASE
     Dosage: 81MG EVERY DAY PO
     Route: 048
     Dates: start: 20041007, end: 20070626
  2. ASPIRIN [Suspect]
     Indication: PROPHYLAXIS
     Dosage: 81MG EVERY DAY PO
     Route: 048
     Dates: start: 20041007, end: 20070626
  3. SULINDAC [Suspect]
     Indication: MUSCULOSKELETAL PAIN
     Dosage: 200MG BID PO
     Route: 048
     Dates: start: 20060623, end: 20070626

REACTIONS (4)
  - GASTRIC HAEMORRHAGE [None]
  - GASTROINTESTINAL HAEMORRHAGE [None]
  - GASTROINTESTINAL ULCER [None]
  - HELICOBACTER INFECTION [None]
